FAERS Safety Report 23312998 (Version 2)
Quarter: 2024Q1

REPORT INFORMATION
  Report Type: Spontaneous
  Country: US (occurrence: US)
  Receive Date: 20231219
  Receipt Date: 20240301
  Transmission Date: 20240409
  Serious: Yes (Hospitalization)
  Sender: FDA-Public Use
  Company Number: US-TEVA-VS-3135799

PATIENT
  Age: 64 Year

DRUGS (2)
  1. NORCO [Suspect]
     Active Substance: ACETAMINOPHEN\HYDROCODONE BITARTRATE
     Indication: Postoperative analgesia
     Dosage: Q4 [SIC]
     Route: 065
     Dates: start: 202006
  2. SENOKOT [Suspect]
     Active Substance: SENNOSIDES
     Indication: Constipation prophylaxis
     Route: 065

REACTIONS (2)
  - Faecaloma [Recovered/Resolved]
  - Drug ineffective [Unknown]

NARRATIVE: CASE EVENT DATE: 20200601
